FAERS Safety Report 9466243 (Version 2)
Quarter: 2013Q3

REPORT INFORMATION
  Report Type: Spontaneous
  Country: US (occurrence: US)
  Receive Date: 20130820
  Receipt Date: 20130923
  Transmission Date: 20140515
  Serious: Yes (Disabling, Other)
  Sender: FDA-Public Use
  Company Number: US-PFIZER INC-2013238766

PATIENT
  Age: 73 Year
  Sex: Male
  Weight: 104 kg

DRUGS (2)
  1. CELEBREX [Suspect]
     Indication: ARTHRITIS
     Dosage: UNK, 1X/DAY
  2. NEURONTIN [Suspect]
     Indication: SURGERY
     Dosage: 300 MG, 2X/DAY

REACTIONS (2)
  - Intervertebral disc protrusion [Unknown]
  - Diabetes mellitus [Unknown]
